FAERS Safety Report 6104353-8 (Version None)
Quarter: 2009Q1

REPORT INFORMATION
  Report Type: 
  Country: None (occurrence: None)
  Receive Date: 20090302
  Receipt Date: 20081203
  Transmission Date: 20090719
  Serious: Yes (Other)
  Sender: FDA-Public Use
  Company Number: 2008EU002977

PATIENT
  Sex: Female

DRUGS (4)
  1. VESICARE [Suspect]
     Indication: HYPERTONIC BLADDER
     Dosage: 10 MG, UID/QD, ORAL
     Route: 048
     Dates: start: 20081014, end: 20081114
  2. BETABLOC (METOPROLOL SUCCINATE) [Concomitant]
  3. TIALORID (AMILORIDE) [Concomitant]
  4. VITAMIN D (COLECALCIFEROL) [Concomitant]

REACTIONS (3)
  - DYSAESTHESIA [None]
  - GAIT DISTURBANCE [None]
  - PARESIS [None]
